FAERS Safety Report 8785433 (Version 1)
Quarter: 2012Q4

REPORT INFORMATION
  Report Type: Spontaneous
  Country: US (occurrence: None)
  Receive Date: 20120907
  Receipt Date: 20120907
  Transmission Date: 20130627
  Serious: Yes (Hospitalization)
  Sender: FDA-Public Use
  Company Number: None

PATIENT
  Age: 40 Year
  Sex: Male
  Weight: 99.6 kg

DRUGS (4)
  1. SULFAMETHOXAZOLE/TRIMETHOPRIM [Suspect]
     Indication: UTI
     Route: 048
     Dates: start: 20120827, end: 20120904
  2. SULFAMETHOXAZOLE/TRIMETHOPRIM [Suspect]
     Indication: KIDNEY STONE
     Route: 048
     Dates: start: 20120827, end: 20120904
  3. SULFAMETHOXAZOLE/TRIMETHOPRIM [Suspect]
     Indication: UTI
     Route: 048
  4. SULFAMETHOXAZOLE/TRIMETHOPRIM [Suspect]
     Indication: KIDNEY STONE
     Route: 048

REACTIONS (3)
  - Leukopenia [None]
  - Pyrexia [None]
  - Rash [None]
